FAERS Safety Report 5421052-6 (Version None)
Quarter: 2007Q3

REPORT INFORMATION
  Report Type: 
  Country: None (occurrence: None)
  Receive Date: 20070821
  Receipt Date: 20070816
  Transmission Date: 20080115
  Serious: Yes (Other)
  Sender: FDA-Public Use
  Company Number: A0671172A

PATIENT
  Age: 84 Year
  Sex: Female

DRUGS (6)
  1. REQUIP [Suspect]
     Indication: PARKINSON'S DISEASE
     Dosage: .25MG THREE TIMES PER DAY
     Route: 048
     Dates: start: 20070701, end: 20070707
  2. CELEBREX [Concomitant]
  3. ACIDEX (ANTACID) [Concomitant]
  4. AMLODIPINE [Concomitant]
  5. URSODIOL [Concomitant]
  6. CHROMAGEN [Concomitant]

REACTIONS (7)
  - ABNORMAL BEHAVIOUR [None]
  - DELUSION [None]
  - FEAR [None]
  - HALLUCINATION, VISUAL [None]
  - PARANOIA [None]
  - PHARMACEUTICAL PRODUCT COMPLAINT [None]
  - SOCIAL AVOIDANT BEHAVIOUR [None]
